FAERS Safety Report 15984239 (Version 1)
Quarter: 2019Q1

REPORT INFORMATION
  Report Type: Spontaneous
  Country: FR (occurrence: FR)
  Receive Date: 20190219
  Receipt Date: 20190219
  Transmission Date: 20190418
  Serious: Yes (Life-Threatening, Hospitalization, Other)
  Sender: FDA-Public Use
  Company Number: FR-AUROBINDO-AUR-APL-2019-004817

PATIENT

DRUGS (14)
  1. FOSFOMYCIN [Suspect]
     Active Substance: FOSFOMYCIN
     Indication: MENINGITIS MENINGOCOCCAL
     Dosage: 4 GRAM, 4 G*4
     Route: 042
     Dates: start: 20181229, end: 20190101
  2. COLISTIN [Concomitant]
     Active Substance: COLISTIN
     Indication: PRODUCT USED FOR UNKNOWN INDICATION
     Dosage: UNK
     Route: 065
     Dates: start: 20190108
  3. PANTOPRAZOLE [Concomitant]
     Active Substance: PANTOPRAZOLE
     Dosage: 40 MILLIGRAM
     Route: 048
     Dates: start: 20181121, end: 20190101
  4. MEROPENEM. [Suspect]
     Active Substance: MEROPENEM
     Dosage: 2 GRAM, UNK
     Route: 042
     Dates: start: 20181127, end: 20190105
  5. FOSFOMYCIN [Suspect]
     Active Substance: FOSFOMYCIN
     Dosage: 4 GRAM, 4 G*4
     Route: 042
     Dates: start: 20190108, end: 20190108
  6. PANTOPRAZOLE [Concomitant]
     Active Substance: PANTOPRAZOLE
     Indication: PROPHYLAXIS
     Dosage: 20 MILLIGRAM/J
     Route: 048
     Dates: start: 20181020, end: 20181113
  7. VANCOMYCINE [Concomitant]
     Active Substance: VANCOMYCIN
     Indication: MENINGITIS MENINGOCOCCAL
     Dosage: UNK
     Route: 042
     Dates: start: 20181126, end: 20181228
  8. AZTREONAM. [Concomitant]
     Active Substance: AZTREONAM
     Indication: PRODUCT USED FOR UNKNOWN INDICATION
     Dosage: UNK
     Route: 065
     Dates: start: 20190108
  9. FOSFOMYCIN [Suspect]
     Active Substance: FOSFOMYCIN
     Dosage: 4 GRAM, 4 G*2
     Route: 042
     Dates: start: 20190102, end: 20190107
  10. VANCOMYCINE [Concomitant]
     Active Substance: VANCOMYCIN
     Dosage: UNK
     Route: 042
     Dates: start: 20181127, end: 20181228
  11. MEROPENEM. [Suspect]
     Active Substance: MEROPENEM
     Dosage: 2 GRAM, TWO TIMES A DAY (2 G, BID)
     Route: 042
     Dates: start: 20181229, end: 20190105
  12. TARDYFERON [Concomitant]
     Active Substance: FERROUS SULFATE
     Indication: IRON DEFICIENCY
     Dosage: 80 MILLIGRAM, 80 MGX2/J
     Route: 048
     Dates: start: 20181121, end: 20190102
  13. PANTOPRAZOLE [Concomitant]
     Active Substance: PANTOPRAZOLE
     Indication: PROPHYLAXIS AGAINST GASTROINTESTINAL ULCER
     Dosage: 20 MILLIGRAM/J
     Route: 048
     Dates: start: 20181116, end: 20181230
  14. MEROPENEM. [Suspect]
     Active Substance: MEROPENEM
     Indication: MENINGITIS MENINGOCOCCAL
     Dosage: 2 GRAM, 3 TIMES A DAY (2GX3)
     Route: 042
     Dates: start: 20181126, end: 20181228

REACTIONS (7)
  - Erythema [Recovering/Resolving]
  - Agranulocytosis [Recovered/Resolved]
  - Skin exfoliation [Recovering/Resolving]
  - Oedema [Recovering/Resolving]
  - Drug reaction with eosinophilia and systemic symptoms [Recovered/Resolved]
  - Pruritus [Recovering/Resolving]
  - Rash [Unknown]

NARRATIVE: CASE EVENT DATE: 20181222
